FAERS Safety Report 7454996-4 (Version None)
Quarter: 2011Q2

REPORT INFORMATION
  Report Type: 
  Country: None (occurrence: None)
  Receive Date: 20110503
  Receipt Date: 20110425
  Transmission Date: 20111010
  Serious: Yes (Other)
  Sender: FDA-Public Use
  Company Number: US-AMGEN-USASP2011021445

PATIENT
  Age: 76 Year
  Sex: Male

DRUGS (2)
  1. ARANESP [Suspect]
     Indication: ANAEMIA
     Dates: start: 20110101
  2. ANTINEOPLASTIC AGENTS [Concomitant]

REACTIONS (3)
  - DYSSTASIA [None]
  - SYNCOPE [None]
  - DIZZINESS [None]
